FAERS Safety Report 21808153 (Version 1)
Quarter: 2023Q1

REPORT INFORMATION
  Report Type: Spontaneous
  Country: CA (occurrence: None)
  Receive Date: 20230103
  Receipt Date: 20230103
  Transmission Date: 20230418
  Serious: Yes (Other)
  Sender: FDA-Public Use
  Company Number: CA-ROCHE-3125421

PATIENT
  Age: 39 Year
  Sex: Female

DRUGS (10)
  1. RITUXIMAB [Suspect]
     Active Substance: RITUXIMAB
     Indication: Neuromyelitis optica spectrum disorder
     Route: 041
  2. CLOXACILLIN SODIUM [Suspect]
     Active Substance: CLOXACILLIN SODIUM
     Indication: Neuromyelitis optica spectrum disorder
     Route: 065
  3. ACETAMINOPHEN [Concomitant]
     Active Substance: ACETAMINOPHEN
     Route: 048
  4. ACETAMINOPHEN [Concomitant]
     Active Substance: ACETAMINOPHEN
     Route: 048
  5. DIPHENHYDRAMINE [Concomitant]
     Active Substance: DIPHENHYDRAMINE
     Route: 048
  6. DIPHENHYDRAMINE [Concomitant]
     Active Substance: DIPHENHYDRAMINE
     Route: 048
  7. METHYLPREDNISOLONE [Concomitant]
     Active Substance: METHYLPREDNISOLONE
     Route: 042
  8. METHYLPREDNISOLONE [Concomitant]
     Active Substance: METHYLPREDNISOLONE
     Route: 042
  9. REMICADE [Concomitant]
     Active Substance: INFLIXIMAB
     Route: 042
  10. SODIUM CHLORIDE [Concomitant]
     Active Substance: SODIUM CHLORIDE
     Route: 065

REACTIONS (18)
  - Foot fracture [Not Recovered/Not Resolved]
  - Drug ineffective for unapproved indication [Unknown]
  - Mean cell volume increased [Not Recovered/Not Resolved]
  - Fatigue [Not Recovered/Not Resolved]
  - Product use in unapproved indication [Unknown]
  - Drug ineffective [Unknown]
  - Mean cell haemoglobin increased [Not Recovered/Not Resolved]
  - Lymphocyte count decreased [Not Recovered/Not Resolved]
  - Off label use [Unknown]
  - Oedema [Not Recovered/Not Resolved]
  - Drug hypersensitivity [Not Recovered/Not Resolved]
  - Contusion [Not Recovered/Not Resolved]
  - Anxiety [Not Recovered/Not Resolved]
  - Clavicle fracture [Not Recovered/Not Resolved]
  - Dyspnoea [Not Recovered/Not Resolved]
  - Feeling hot [Not Recovered/Not Resolved]
  - Malaise [Not Recovered/Not Resolved]
  - Platelet count decreased [Not Recovered/Not Resolved]
